FAERS Safety Report 8560237-7 (Version None)
Quarter: 2012Q3

REPORT INFORMATION
  Report Type: 
  Country: None (occurrence: None)
  Receive Date: 20120802
  Receipt Date: 20120724
  Transmission Date: 20120928
  Serious: Yes (Hospitalization)
  Sender: FDA-Public Use
  Company Number: US-BAYER-2012-039773

PATIENT
  Age: 29 Year
  Sex: Female

DRUGS (11)
  1. YAZ [Suspect]
     Dosage: UNK
     Dates: start: 20090301, end: 20090601
  2. NAPROXEN (ALEVE) [Concomitant]
     Dosage: 220 MG, TID PRN
     Route: 048
  3. YASMIN [Suspect]
  4. LAMICTAL [Concomitant]
     Dosage: 100 MG, DAILY
     Route: 048
     Dates: start: 20090507
  5. LITHIUM CARBONATE [Concomitant]
     Dosage: 600 MG, DAILY
     Route: 048
     Dates: start: 20090311, end: 20090506
  6. PERCOCET [Concomitant]
     Indication: PAIN
  7. BENADRYL [Concomitant]
     Dosage: 1 TO 2 TABLETS Q HS, PRN
     Route: 048
  8. FLONASE [Concomitant]
     Dosage: 2 PUFF(S), DAILY PRN
     Route: 045
  9. CLONAZEPAM [Concomitant]
     Dosage: 1 MG, UNK
     Dates: start: 20090311
  10. VICODIN [Concomitant]
     Dosage: 10 MG/500 MG
  11. RISPERDAL [Concomitant]
     Dosage: 2 MG, Q HS
     Route: 048
     Dates: start: 20090413, end: 20090506

REACTIONS (6)
  - EMOTIONAL DISTRESS [None]
  - PULMONARY EMBOLISM [None]
  - PAIN [None]
  - ANXIETY [None]
  - INJURY [None]
  - GENERAL PHYSICAL HEALTH DETERIORATION [None]
